FAERS Safety Report 5535544-2 (Version None)
Quarter: 2007Q4

REPORT INFORMATION
  Report Type: 
  Country: None (occurrence: None)
  Receive Date: 20071120
  Receipt Date: 20070813
  Transmission Date: 20080405
  Serious: No
  Sender: FDA-Public Use
  Company Number: WAES 0708USA02559

PATIENT
  Age: 43 Year
  Sex: Female

DRUGS (8)
  1. JANUVIA [Suspect]
     Indication: DIABETES MELLITUS
     Dosage: 100 MG DAILY PO, 25 MG DAILY PO
     Route: 048
     Dates: start: 20070417, end: 20070601
  2. JANUVIA [Suspect]
     Indication: DIABETES MELLITUS
     Dosage: 100 MG DAILY PO, 25 MG DAILY PO
     Route: 048
     Dates: start: 20070601
  3. AMARYL [Concomitant]
  4. AVANDAMET [Concomitant]
  5. BENICAR [Concomitant]
  6. NORVASC [Concomitant]
  7. ZOCOR [Concomitant]
  8. HYDROCHLOROTHIAZIDE [Concomitant]

REACTIONS (4)
  - BLOOD CREATININE INCREASED [None]
  - BLOOD UREA INCREASED [None]
  - GLOMERULAR FILTRATION RATE DECREASED [None]
  - THERAPEUTIC RESPONSE UNEXPECTED [None]
